FAERS Safety Report 8570029-0 (Version None)
Quarter: 2012Q3

REPORT INFORMATION
  Report Type: 
  Country: None (occurrence: None)
  Receive Date: 20120803
  Receipt Date: 20120227
  Transmission Date: 20120928
  Serious: No
  Sender: FDA-Public Use
  Company Number: US-ABBOTT-12P-163-0908860-00

PATIENT
  Sex: Male
  Weight: 98.518 kg

DRUGS (4)
  1. CLARITIN [Concomitant]
     Indication: PRODUCT USED FOR UNKNOWN INDICATION
  2. ZETIA [Concomitant]
     Indication: BLOOD CHOLESTEROL
  3. NIASPAN [Suspect]
     Indication: HIGH DENSITY LIPOPROTEIN DECREASED
     Route: 048
     Dates: start: 20111101
  4. AMLODIPINE [Concomitant]
     Indication: HYPERTENSION

REACTIONS (2)
  - FLUSHING [None]
  - PRURITUS [None]
